FAERS Safety Report 15000507 (Version 7)
Quarter: 2018Q4

REPORT INFORMATION
  Report Type: Report from Study
  Country: US (occurrence: US)
  Receive Date: 20180612
  Receipt Date: 20181105
  Transmission Date: 20190204
  Serious: Yes (Other)
  Sender: FDA-Public Use
  Company Number: US-PFIZER INC-2018238269

PATIENT
  Age: 71 Year
  Sex: Female

DRUGS (4)
  1. IBRANCE [Suspect]
     Active Substance: PALBOCICLIB
     Dosage: 75 MG, CYCLIC (14 DAYS ON, 7 DAYS OFF FOR 21 DAY CYCLE) (DAILY 2 WEEKS ON 1 WEEK OFF)
     Route: 048
     Dates: start: 20180521, end: 20180610
  2. LETROZOLE. [Concomitant]
     Active Substance: LETROZOLE
     Dosage: UNK, DAILY
  3. IBRANCE [Suspect]
     Active Substance: PALBOCICLIB
     Indication: BREAST CANCER
     Dosage: 75 MG, CYCLIC (28 DAY CYCLE, 21 DAYS ON THERAPY, FOLLOWED BY 7 DAYS OFF)
     Route: 048
     Dates: start: 2018
  4. IBRANCE [Suspect]
     Active Substance: PALBOCICLIB
     Dosage: 75 MG, CYCLIC (DAILY X 14 DAYS FOLLOWED BY 7 DAYS OFF)
     Route: 048
     Dates: start: 201806, end: 201807

REACTIONS (4)
  - Bone marrow failure [Unknown]
  - Fatigue [Not Recovered/Not Resolved]
  - White blood cell count decreased [Unknown]
  - Stomatitis [Unknown]

NARRATIVE: CASE EVENT DATE: 2018
